FAERS Safety Report 8376416-8 (Version None)
Quarter: 2012Q2

REPORT INFORMATION
  Report Type: 
  Country: None (occurrence: None)
  Receive Date: 20120522
  Receipt Date: 20120521
  Transmission Date: 20120825
  Serious: Yes (Death, Hospitalization)
  Sender: FDA-Public Use
  Company Number: PHHY2011SV84125

PATIENT
  Age: 79 Year
  Sex: Male

DRUGS (1)
  1. DIOVAN [Suspect]
     Indication: HYPERTENSION
     Dosage: 160 MG, UNK

REACTIONS (5)
  - LEUKAEMIA [None]
  - CARDIAC ARREST [None]
  - RENAL DISORDER [None]
  - RENAL FAILURE [None]
  - LIVER INJURY [None]
